FAERS Safety Report 12350629 (Version 1)
Quarter: 2016Q2

REPORT INFORMATION
  Report Type: Spontaneous
  Country: US (occurrence: None)
  Receive Date: 20160509
  Receipt Date: 20160509
  Transmission Date: 20160815
  Serious: No
  Sender: FDA-Public Use
  Company Number: None

PATIENT
  Age: 63 Year
  Sex: Female
  Weight: 83.92 kg

DRUGS (8)
  1. TIZANIDINE. [Concomitant]
     Active Substance: TIZANIDINE
  2. SIMVASTIN [Concomitant]
     Active Substance: SIMVASTATIN
  3. METROPROLOL [Concomitant]
     Active Substance: METOPROLOL
  4. HTCZ [Concomitant]
  5. DULOXETINE DR [Suspect]
     Active Substance: DULOXETINE
     Indication: PAIN
     Route: 048
     Dates: start: 20160420, end: 20160430
  6. LEVOTHROXINE [Concomitant]
  7. DULOXETINE DR [Suspect]
     Active Substance: DULOXETINE
     Indication: DEPRESSION
     Route: 048
     Dates: start: 20160420, end: 20160430
  8. OMEPROZOL [Concomitant]

REACTIONS (9)
  - Decreased appetite [None]
  - Dyspnoea [None]
  - Somnolence [None]
  - Influenza like illness [None]
  - Salt craving [None]
  - Fatigue [None]
  - Tremor [None]
  - Mental impairment [None]
  - Depression [None]

NARRATIVE: CASE EVENT DATE: 20160420
